FAERS Safety Report 12360735 (Version 2)
Quarter: 2016Q2

REPORT INFORMATION
  Report Type: Spontaneous
  Country: US (occurrence: US)
  Receive Date: 20160512
  Receipt Date: 20160606
  Transmission Date: 20160815
  Serious: Yes (Hospitalization, Other)
  Sender: FDA-Public Use
  Company Number: US-MDT-ADR-2016-00859

PATIENT
  Sex: Male

DRUGS (19)
  1. TOTAL PARENTERAL NUTRITION [Suspect]
     Active Substance: UNSPECIFIED INGREDIENT
  2. FAT EMULSION NOS [Suspect]
     Active Substance: EGG PHOSPHOLIPIDS\SAFFLOWER OIL\SOYBEAN OIL
  3. PENDEX [Suspect]
     Active Substance: GUAIFENESIN\PHENYLEPHRINE HYDROCHLORIDE
  4. ZOFRAN [Suspect]
     Active Substance: ONDANSETRON HYDROCHLORIDE
  5. CEFTRIAXONE. [Suspect]
     Active Substance: CEFTRIAXONE
  6. VITAMIN D [Suspect]
     Active Substance: CHOLECALCIFEROL
  7. LOSARTAN. [Suspect]
     Active Substance: LOSARTAN
  8. DILAUDID [Suspect]
     Active Substance: HYDROMORPHONE HYDROCHLORIDE
  9. XOPENEX [Suspect]
     Active Substance: LEVALBUTEROL HYDROCHLORIDE
  10. ATIVAN [Suspect]
     Active Substance: LORAZEPAM
  11. PROPRANOLOL [Suspect]
     Active Substance: PROPRANOLOL\PROPRANOLOL HYDROCHLORIDE
  12. CETIRIZINE [Suspect]
     Active Substance: CETIRIZINE HYDROCHLORIDE
  13. ACETAMINOPHEN. [Suspect]
     Active Substance: ACETAMINOPHEN
  14. GABLOFEN [Suspect]
     Active Substance: BACLOFEN
     Dosage: 283.9 MCG/DAY
     Route: 037
     Dates: start: 20160502
  15. ASCORBIC ACID. [Suspect]
     Active Substance: ASCORBIC ACID
  16. BACLOFEN. [Suspect]
     Active Substance: BACLOFEN
     Route: 037
  17. HYDRALAZINE [Suspect]
     Active Substance: HYDRALAZINE HYDROCHLORIDE
  18. MILK OF MAGNESIA [Suspect]
     Active Substance: MAGNESIUM HYDROXIDE
  19. PREVACID [Suspect]
     Active Substance: LANSOPRAZOLE

REACTIONS (8)
  - Intestinal obstruction [Unknown]
  - CSF white blood cell count increased [Unknown]
  - Blood pressure abnormal [Unknown]
  - Pneumonia klebsiella [Unknown]
  - Hypertonia [Unknown]
  - Central nervous system infection [Unknown]
  - Heart rate abnormal [Unknown]
  - CSF culture positive [Unknown]
